FAERS Safety Report 6542009-8 (Version None)
Quarter: 2010Q1

REPORT INFORMATION
  Report Type: 
  Country: None (occurrence: None)
  Receive Date: 20100119
  Receipt Date: 20091022
  Transmission Date: 20100710
  Serious: Yes (Hospitalization)
  Sender: FDA-Public Use
  Company Number: FR-PFIZER INC-2009278870

PATIENT
  Age: 70 Year
  Sex: Male

DRUGS (7)
  1. IRINOTECAN HCL [Suspect]
     Indication: GASTRIC CANCER
     Dosage: CYCLE 1, TOTAL DOSAGE 1180 MG
     Dates: start: 20070103
  2. IRINOTECAN HCL [Suspect]
     Dosage: CYCLE 2, TOTAL DOSAGE 500 MG
     Dates: start: 20070315
  3. FLUOROURACIL [Suspect]
     Indication: GASTRIC CANCER
     Dosage: CYCLE 1, TOTAL DOSAGE 1500 MG
     Route: 040
     Dates: start: 20070103
  4. FLUOROURACIL [Suspect]
     Dosage: CYCLE 1, TOTAL DOSAGE 15600 MG
     Route: 042
     Dates: start: 20070103
  5. FLUOROURACIL [Suspect]
     Dosage: CYCLE 2, TOTAL DOSAGE 6600 MG
     Route: 042
     Dates: start: 20070315
  6. FOLINIC ACID [Suspect]
     Indication: GASTRIC CANCER
     Dosage: CYCLE 1, TOTAL DOSAGE 3000 MG
     Dates: start: 20070103
  7. FOLINIC ACID [Suspect]
     Dosage: CYCLE 2, TOTAL DOSAGE 1500 MG
     Dates: start: 20070315

REACTIONS (3)
  - DECREASED APPETITE [None]
  - DEVICE RELATED INFECTION [None]
  - GENERAL PHYSICAL HEALTH DETERIORATION [None]
